FAERS Safety Report 13879686 (Version 1)
Quarter: 2017Q3

REPORT INFORMATION
  Report Type: Spontaneous
  Country: US (occurrence: US)
  Receive Date: 20170818
  Receipt Date: 20170818
  Transmission Date: 20171127
  Serious: Yes (Life-Threatening, Hospitalization, Other)
  Sender: FDA-Public Use
  Company Number: US-ALKEM LABORATORIES LIMITED-US-ALKEM-2017-00360

PATIENT
  Age: 49 Year
  Sex: Male

DRUGS (21)
  1. OLANZAPINE. [Suspect]
     Active Substance: OLANZAPINE
     Dosage: 10 MG, QD (POD 5)
  2. OLANZAPINE. [Suspect]
     Active Substance: OLANZAPINE
     Dosage: 10 MG, BID (POD 6)
  3. FENTANYL. [Concomitant]
     Active Substance: FENTANYL
     Indication: SEDATION
  4. KETAMINE [Concomitant]
     Active Substance: KETAMINE
     Indication: ANALGESIC THERAPY
     Dosage: 5-15 MG/H
  5. HALOPERIDOL. [Suspect]
     Active Substance: HALOPERIDOL
     Dosage: 5 MG, QD
     Route: 042
  6. OXYCODONE [Concomitant]
     Active Substance: OXYCODONE
     Indication: ANALGESIC THERAPY
     Dosage: UNKNOWN
  7. FENTANYL. [Concomitant]
     Active Substance: FENTANYL
     Indication: PROCEDURAL PAIN
     Dosage: UNKNOWN
  8. PROPOFOL. [Concomitant]
     Active Substance: PROPOFOL
     Indication: AGITATION
  9. HALOPERIDOL. [Suspect]
     Active Substance: HALOPERIDOL
     Dosage: 10 MG, QD
     Route: 042
  10. HYDROMORPHONE [Concomitant]
     Active Substance: HYDROMORPHONE
     Indication: ANALGESIC THERAPY
     Dosage: AS NEEDED DOSES
     Route: 042
  11. HALOPERIDOL. [Suspect]
     Active Substance: HALOPERIDOL
     Dosage: 5 MG, QD
     Route: 042
  12. MIDAZOLAM [Concomitant]
     Active Substance: MIDAZOLAM HYDROCHLORIDE
     Indication: AGITATION
     Dosage: UNKNOWN
  13. OLANZAPINE. [Suspect]
     Active Substance: OLANZAPINE
     Indication: DELIRIUM
     Dosage: 5 MG, QD  (POD 4)
  14. HALOPERIDOL. [Suspect]
     Active Substance: HALOPERIDOL
     Indication: DELIRIUM
     Dosage: 5 MG, QD  (POD 4)
     Route: 042
  15. PROPOFOL. [Concomitant]
     Active Substance: PROPOFOL
     Indication: PROCEDURAL PAIN
     Dosage: UNKNOWN
  16. PROPOFOL. [Concomitant]
     Active Substance: PROPOFOL
     Indication: SEDATION
  17. QUETIAPINE FUMARATE. [Suspect]
     Active Substance: QUETIAPINE FUMARATE
     Indication: DELIRIUM
     Dosage: 25 MG, BID
  18. OLANZAPINE. [Suspect]
     Active Substance: OLANZAPINE
     Dosage: 5 MG, QD (POD 5)
  19. HALOPERIDOL. [Suspect]
     Active Substance: HALOPERIDOL
     Dosage: 5 MG, QD
     Route: 042
  20. CLONIDINE. [Concomitant]
     Active Substance: CLONIDINE
     Indication: AGITATION
     Dosage: UNKNOWN TID
     Route: 048
  21. GABAPENTIN. [Concomitant]
     Active Substance: GABAPENTIN
     Indication: ANALGESIC THERAPY
     Dosage: 900- 1800 MG/DAY QD

REACTIONS (2)
  - Neuroleptic malignant syndrome [Recovering/Resolving]
  - Electrocardiogram QT prolonged [Recovered/Resolved]
